FAERS Safety Report 11061545 (Version 1)
Quarter: 2015Q2

REPORT INFORMATION
  Report Type: Spontaneous
  Country: US (occurrence: None)
  Receive Date: 20150423
  Receipt Date: 20150423
  Transmission Date: 20150821
  Serious: Yes (Other)
  Sender: FDA-Public Use
  Company Number: None

PATIENT
  Age: 58 Year
  Sex: Female
  Weight: 94.35 kg

DRUGS (10)
  1. PAXIL [Concomitant]
     Active Substance: PAROXETINE HYDROCHLORIDE
  2. METAMUCIL [Concomitant]
     Active Substance: PLANTAGO SEED
  3. MELATONIN [Concomitant]
     Active Substance: MELATONIN
  4. PHILIPS COLON HEALTH [Concomitant]
  5. LIOTHYRONIN [Concomitant]
  6. MULTIPLE VITAMIN [Concomitant]
     Active Substance: VITAMINS
  7. XANAX P.R.N. [Concomitant]
  8. CYMBALTA [Suspect]
     Active Substance: DULOXETINE HYDROCHLORIDE
     Indication: DEPRESSION
     Route: 048
  9. AMBIEN [Concomitant]
     Active Substance: ZOLPIDEM TARTRATE
  10. OMEGA 3 [Concomitant]
     Active Substance: OMEGA-3 FATTY ACIDS

REACTIONS (4)
  - Nausea [None]
  - Gastroenteritis [None]
  - Gallbladder polyp [None]
  - Vomiting [None]

NARRATIVE: CASE EVENT DATE: 20150422
